FAERS Safety Report 5366287-6 (Version None)
Quarter: 2007Q2

REPORT INFORMATION
  Report Type: 
  Country: None (occurrence: None)
  Receive Date: 20070619
  Receipt Date: 20070619
  Transmission Date: 20071010
  Serious: Yes (Hospitalization)
  Sender: FDA-Public Use
  Company Number: None

PATIENT
  Age: 43 Year
  Sex: Female
  Weight: 63.05 kg

DRUGS (1)
  1. WARIFN  5.0 MG  BARR LABORATORIES [Suspect]
     Indication: DEEP VEIN THROMBOSIS
     Dosage: 7.5 MG  4X/WEEK  PO;  10 MG 3X/WEEK  PO
     Route: 048
     Dates: start: 20070327, end: 20070515

REACTIONS (4)
  - DRUG HYPERSENSITIVITY [None]
  - LIP SWELLING [None]
  - SWOLLEN TONGUE [None]
  - URTICARIA [None]
